FAERS Safety Report 7711786-2 (Version None)
Quarter: 2011Q3

REPORT INFORMATION
  Report Type: 
  Country: None (occurrence: None)
  Receive Date: 20110823
  Receipt Date: 20110811
  Transmission Date: 20111222
  Serious: Yes (Other)
  Sender: FDA-Public Use
  Company Number: DSU-2011-05933

PATIENT
  Sex: Male

DRUGS (3)
  1. BENICAR HCT [Suspect]
     Indication: HYPERTENSION
     Dosage: 40/12.5 MG (QD), PER ORAL
     Route: 048
     Dates: start: 20110201, end: 20110101
  2. NORVASC [Concomitant]
  3. BENICAR [Suspect]
     Indication: HYPERTENSION
     Dosage: 80 MG (80 MG, 2 (40MG) TABLETS QD), PER ORAL
     Route: 048
     Dates: start: 20110101

REACTIONS (1)
  - EJECTION FRACTION DECREASED [None]
